FAERS Safety Report 23565079 (Version 1)
Quarter: 2024Q1

REPORT INFORMATION
  Report Type: Spontaneous
  Country: CN (occurrence: CN)
  Receive Date: 20240226
  Receipt Date: 20240226
  Transmission Date: 20240410
  Serious: Yes (Other)
  Sender: FDA-Public Use
  Company Number: CN-CHEPLA-2024002493

PATIENT
  Age: 5 Month
  Sex: Male

DRUGS (2)
  1. GANCICLOVIR [Suspect]
     Active Substance: GANCICLOVIR
     Indication: Cytomegalovirus infection
     Route: 042
  2. GANCICLOVIR [Suspect]
     Active Substance: GANCICLOVIR
     Indication: Cytomegalovirus infection
     Route: 031

REACTIONS (3)
  - Off label use [Unknown]
  - Vitreous haemorrhage [Unknown]
  - Retinal detachment [Unknown]
